FAERS Safety Report 7434590-1 (Version None)
Quarter: 2011Q2

REPORT INFORMATION
  Report Type: 
  Country: None (occurrence: None)
  Receive Date: 20110420
  Receipt Date: 20110420
  Transmission Date: 20111010
  Serious: No
  Sender: FDA-Public Use
  Company Number: None

PATIENT
  Age: 61 Year
  Sex: Female
  Weight: 68.0396 kg

DRUGS (4)
  1. FENTANYL-12 [Suspect]
     Indication: OSTEOARTHRITIS
     Dosage: 12 MCG/HR PATCH  EVERY 72 HRS. TRANSDERMAL
     Route: 062
     Dates: start: 20110310, end: 20110410
  2. FENTANYL-12 [Suspect]
     Indication: ARTHROSCOPY
     Dosage: 12 MCG/HR PATCH  EVERY 72 HRS. TRANSDERMAL
     Route: 062
     Dates: start: 20110310, end: 20110410
  3. FENTANYL-12 [Suspect]
     Indication: SPINAL DISORDER
     Dosage: 12 MCG/HR PATCH  EVERY 72 HRS. TRANSDERMAL
     Route: 062
     Dates: start: 20110310, end: 20110410
  4. FENTANYL-12 [Suspect]
     Indication: PAIN
     Dosage: 12 MCG/HR PATCH  EVERY 72 HRS. TRANSDERMAL
     Route: 062
     Dates: start: 20110310, end: 20110410

REACTIONS (3)
  - EXPIRED DRUG ADMINISTERED [None]
  - DRUG INEFFECTIVE [None]
  - PRODUCT SUBSTITUTION ISSUE [None]
